FAERS Safety Report 12239407 (Version 1)
Quarter: 2016Q2

REPORT INFORMATION
  Report Type: Spontaneous
  Country: US (occurrence: US)
  Receive Date: 20160405
  Receipt Date: 20160405
  Transmission Date: 20160815
  Serious: No
  Sender: FDA-Public Use
  Company Number: 2013-001194 WARNER CHILCOTT

PATIENT
  Age: 69 Year
  Sex: Female

DRUGS (2)
  1. DYAZIDE [Concomitant]
     Active Substance: HYDROCHLOROTHIAZIDE\TRIAMTERENE
  2. FEMRING [Suspect]
     Active Substance: ESTRADIOL ACETATE
     Indication: CYSTITIS
     Route: 067
     Dates: start: 2008

REACTIONS (9)
  - Abdominal pain upper [Not Recovered/Not Resolved]
  - Peripheral swelling [Not Recovered/Not Resolved]
  - Drug administration error [Not Recovered/Not Resolved]
  - Diarrhoea [Not Recovered/Not Resolved]
  - Swelling [Not Recovered/Not Resolved]
  - Device expulsion [Not Recovered/Not Resolved]
  - Swelling face [Not Recovered/Not Resolved]
  - Vomiting [Not Recovered/Not Resolved]
  - Pyrexia [Not Recovered/Not Resolved]

NARRATIVE: CASE EVENT DATE: 20130416
